FAERS Safety Report 4877698-7 (Version None)
Quarter: 2005Q4

REPORT INFORMATION
  Report Type: 
  Country: None (occurrence: None)
  Receive Date: 20051206
  Receipt Date: 20050926
  Transmission Date: 20060501
  Serious: No
  Sender: FDA-Public Use
  Company Number: USA0509109109

PATIENT
  Age: 29 Year
  Sex: Female

DRUGS (1)
  1. CYMBALTA [Suspect]
     Dates: start: 20050601, end: 20050924

REACTIONS (4)
  - DIZZINESS [None]
  - DRUG WITHDRAWAL SYNDROME [None]
  - FEELING ABNORMAL [None]
  - FEELING HOT [None]
